FAERS Safety Report 9478855 (Version 2)
Quarter: 2014Q1

REPORT INFORMATION
  Report Type: Spontaneous
  Country: FR (occurrence: FR)
  Receive Date: 20130827
  Receipt Date: 20140306
  Transmission Date: 20141002
  Serious: Yes (Other)
  Sender: FDA-Public Use
  Company Number: FR-ASTRAZENECA-2013SE64338

PATIENT
  Age: 156 Month
  Sex: Male

DRUGS (7)
  1. INEXIUM [Suspect]
     Indication: JUVENILE IDIOPATHIC ARTHRITIS
     Route: 048
  2. ROACTEMRA [Suspect]
     Indication: JUVENILE IDIOPATHIC ARTHRITIS
     Route: 042
     Dates: start: 200909
  3. CORTANCYL [Suspect]
     Indication: JUVENILE IDIOPATHIC ARTHRITIS
     Route: 065
  4. APRANAX [Suspect]
     Indication: JUVENILE IDIOPATHIC ARTHRITIS
     Route: 065
     Dates: end: 20130313
  5. APRANAX [Suspect]
     Indication: JUVENILE IDIOPATHIC ARTHRITIS
     Route: 065
     Dates: start: 20130403
  6. CONTRAMAL [Suspect]
     Indication: JUVENILE IDIOPATHIC ARTHRITIS
     Dosage: 10-15 DROPS EVERY DAY
     Route: 065
  7. PARACETAMOL [Suspect]
     Indication: JUVENILE IDIOPATHIC ARTHRITIS
     Route: 048

REACTIONS (2)
  - Rectal haemorrhage [Recovered/Resolved]
  - Inflammatory bowel disease [Not Recovered/Not Resolved]
